FAERS Safety Report 7379790-4 (Version None)
Quarter: 2011Q1

REPORT INFORMATION
  Report Type: 
  Country: None (occurrence: None)
  Receive Date: 20110329
  Receipt Date: 20110315
  Transmission Date: 20110831
  Serious: Yes (Hospitalization)
  Sender: FDA-Public Use
  Company Number: US-EISAI INC-E7389-01184-SPO-US

PATIENT
  Sex: Male

DRUGS (1)
  1. HALAVEN [Suspect]
     Route: 041
     Dates: start: 20110101

REACTIONS (3)
  - GENERALISED OEDEMA [None]
  - ASCITES [None]
  - PLEURAL EFFUSION [None]
